FAERS Safety Report 6892763-0 (Version None)
Quarter: 2010Q3

REPORT INFORMATION
  Report Type: 
  Country: None (occurrence: None)
  Receive Date: 20100731
  Receipt Date: 20080904
  Transmission Date: 20110219
  Serious: No
  Sender: FDA-Public Use
  Company Number: US-PFIZER INC-2008074996

PATIENT
  Age: 53 Year
  Sex: Female
  Weight: 65 kg

DRUGS (8)
  1. NEURONTIN [Suspect]
     Indication: POST HERPETIC NEURALGIA
     Dates: start: 20071129
  2. DIOVANE [Concomitant]
  3. RANITIDINE [Concomitant]
  4. CLARITIN [Concomitant]
  5. GEODON [Concomitant]
  6. CLONAZEPAM [Concomitant]
  7. TRIAZOLAM [Concomitant]
  8. RIFAXIMIN [Concomitant]

REACTIONS (1)
  - DRUG INEFFECTIVE [None]
